FAERS Safety Report 18819224 (Version 8)
Quarter: 2021Q3

REPORT INFORMATION
  Report Type: Spontaneous
  Country: DE (occurrence: DE)
  Receive Date: 20210201
  Receipt Date: 20210902
  Transmission Date: 20211014
  Serious: Yes (Other)
  Sender: FDA-Public Use
  Company Number: DE-PFIZER INC-2021065401

PATIENT
  Age: 70 Year
  Sex: Female

DRUGS (7)
  1. ANASTROZOLE. [Suspect]
     Active Substance: ANASTROZOLE
     Dosage: UNK
  2. AFINITOR [Suspect]
     Active Substance: EVEROLIMUS
     Indication: BREAST CANCER METASTATIC
     Dosage: 5 MG, QD
  3. FASLODEX [Suspect]
     Active Substance: FULVESTRANT
     Dosage: UNK
  4. TAMOXIFEN [Suspect]
     Active Substance: TAMOXIFEN
     Dosage: UNK
  5. PALBOCICLIB [Suspect]
     Active Substance: PALBOCICLIB
     Dosage: 125 MG
  6. EXEMESTANE. [Suspect]
     Active Substance: EXEMESTANE
     Indication: BREAST CANCER METASTATIC
     Dosage: UNK
     Dates: start: 2014, end: 2014
  7. AFINITOR [Suspect]
     Active Substance: EVEROLIMUS
     Dosage: 10 MG, QD (2X5 MG)

REACTIONS (30)
  - Bone density abnormal [Unknown]
  - Dyspnoea [Unknown]
  - Immunoglobulins decreased [Unknown]
  - Lymphocyte count decreased [Unknown]
  - Impaired healing [Unknown]
  - Angina pectoris [Unknown]
  - Burning sensation [Recovering/Resolving]
  - Anosmia [Recovering/Resolving]
  - Globulins decreased [Unknown]
  - Myocardial infarction [Unknown]
  - Neoplasm progression [Not Recovered/Not Resolved]
  - Mobility decreased [Unknown]
  - Muscle spasms [Unknown]
  - Pain [Unknown]
  - Gene mutation [Unknown]
  - Red blood cell count decreased [Recovered/Resolved]
  - Tumour marker increased [Recovering/Resolving]
  - Gait disturbance [Unknown]
  - Abdominal discomfort [Unknown]
  - Sleep disorder [Unknown]
  - Ageusia [Recovered/Resolved]
  - Mouth swelling [Unknown]
  - Nasal mucosal disorder [Unknown]
  - White blood cell count decreased [Recovered/Resolved]
  - Colitis microscopic [Unknown]
  - Contusion [Unknown]
  - Nasal dryness [Unknown]
  - Blood lactate dehydrogenase increased [Unknown]
  - Haemoglobin decreased [Recovered/Resolved]
  - Haematocrit decreased [Recovered/Resolved]

NARRATIVE: CASE EVENT DATE: 201408
